FAERS Safety Report 7116984-7 (Version None)
Quarter: 2010Q4

REPORT INFORMATION
  Report Type: 
  Country: None (occurrence: None)
  Receive Date: 20101115
  Receipt Date: 20101102
  Transmission Date: 20110411
  Serious: Yes (Other)
  Sender: FDA-Public Use
  Company Number: DSA_44283_2010

PATIENT
  Age: 70 Year
  Sex: Male

DRUGS (13)
  1. TAZTIA XT [Suspect]
     Indication: BLOOD PRESSURE ABNORMAL
     Dosage: 360 MG QD ORAL
     Route: 048
     Dates: start: 20050101
  2. UROXATRAL [Suspect]
     Indication: PROSTATIC DISORDER
     Dosage: 10 MG AT BEDTIME ORAL
     Route: 048
     Dates: start: 20091101
  3. UROXATRAL [Suspect]
     Indication: URINE FLOW DECREASED
     Dosage: 10 MG AT BEDTIME ORAL
     Route: 048
     Dates: start: 20091101
  4. FUROSEMIDE [Suspect]
     Dosage: DF
  5. AMBIEN [Suspect]
     Dosage: DF
  6. POTASSIUM CHLORIDE 10MEQ [Suspect]
     Indication: MINERAL SUPPLEMENTATION
     Dosage: 10 MEQ BID ORAL
     Route: 048
     Dates: start: 20050101
  7. AVODART [Suspect]
     Indication: PROSTATIC DISORDER
     Dosage: 0.5 MG QD ORAL
     Route: 048
     Dates: start: 20070101
  8. ZETIA [Suspect]
     Indication: CARDIAC DISORDER
     Dosage: 10 MG QD ORAL
     Route: 048
     Dates: start: 20060101
  9. METOPROLOL 100 MG [Suspect]
     Indication: BLOOD PRESSURE ABNORMAL
     Dosage: 100 MG QD OTHER
     Route: 050
     Dates: start: 20050101
  10. QUINAPRIL [Suspect]
     Indication: BLOOD PRESSURE ABNORMAL
     Dosage: 40 MG QD ORAL
     Route: 048
     Dates: start: 20030101
  11. ALPRAZOLAM [Suspect]
     Indication: NERVOUS SYSTEM DISORDER
     Dosage: 0.5 MG QD ORAL
     Route: 048
     Dates: start: 19980101
  12. ARICEPT [Suspect]
     Indication: AMNESIA
     Dosage: 5 MG QD ORAL
     Route: 048
     Dates: start: 20100101, end: 20100901
  13. NAMENDA 5 MG (NOT SPECIFIED) [Suspect]
     Indication: DEMENTIA
     Dosage: 5 MG QD ORAL
     Route: 048
     Dates: start: 20100921

REACTIONS (11)
  - ABDOMINAL DISCOMFORT [None]
  - DIARRHOEA [None]
  - DIZZINESS [None]
  - DYSURIA [None]
  - ERYTHEMA [None]
  - EYE IRRITATION [None]
  - GAIT DISTURBANCE [None]
  - HEADACHE [None]
  - NAUSEA [None]
  - OEDEMA PERIPHERAL [None]
  - URINE FLOW DECREASED [None]
